FAERS Safety Report 8540515-8 (Version None)
Quarter: 2012Q3

REPORT INFORMATION
  Report Type: 
  Country: None (occurrence: None)
  Receive Date: 20120726
  Receipt Date: 20111230
  Transmission Date: 20120928
  Serious: No
  Sender: FDA-Public Use
  Company Number: US-ASTRAZENECA-2011SE47247

PATIENT
  Age: 42 Year
  Sex: Female
  Weight: 56.7 kg

DRUGS (3)
  1. PROZAC [Concomitant]
     Indication: DEPRESSION
  2. VYVANSE [Concomitant]
     Indication: ATTENTION DEFICIT/HYPERACTIVITY DISORDER
  3. SEROQUEL [Suspect]
     Route: 048

REACTIONS (6)
  - VOMITING [None]
  - INSOMNIA [None]
  - HEADACHE [None]
  - MALAISE [None]
  - NAUSEA [None]
  - DRUG DOSE OMISSION [None]
